FAERS Safety Report 9648446 (Version 3)
Quarter: 2015Q3

REPORT INFORMATION
  Report Type: Spontaneous
  Country: US (occurrence: US)
  Receive Date: 20131028
  Receipt Date: 20150928
  Transmission Date: 20151125
  Serious: Yes (Hospitalization)
  Sender: FDA-Public Use
  Company Number: US-BAYER-2013-130644

PATIENT
  Age: 30 Year
  Sex: Female
  Weight: 75.28 kg

DRUGS (1)
  1. MIRENA [Suspect]
     Active Substance: LEVONORGESTREL
     Indication: CONTRACEPTION
     Dosage: 20 MCG/24HR, CONT
     Route: 015
     Dates: start: 20110913, end: 20131129

REACTIONS (9)
  - Pelvic pain [None]
  - Haemorrhagic ovarian cyst [None]
  - Abdominal pain [None]
  - Device difficult to use [None]
  - Uterine perforation [None]
  - Device issue [None]
  - Dyspareunia [Not Recovered/Not Resolved]
  - Injury [None]
  - Device dislocation [None]

NARRATIVE: CASE EVENT DATE: 201110
